FAERS Safety Report 22633871 (Version 2)
Quarter: 2023Q2

REPORT INFORMATION
  Report Type: Spontaneous
  Country: JP (occurrence: JP)
  Receive Date: 20230623
  Receipt Date: 20230630
  Transmission Date: 20230722
  Serious: Yes (Other)
  Sender: FDA-Public Use
  Company Number: JP-BAYER-2023A083066

PATIENT
  Age: 71 Year
  Sex: Male

DRUGS (3)
  1. NUBEQA [Suspect]
     Active Substance: DAROLUTAMIDE
     Indication: Hormone-dependent prostate cancer
     Dosage: DAILY DOSE 1200 MG
     Route: 048
     Dates: start: 20230419, end: 20230531
  2. DOCETAXEL [Suspect]
     Active Substance: DOCETAXEL
     Dosage: DAILY DOSE 75 MG/M2
     Route: 042
     Dates: start: 20230510, end: 20230510
  3. LEUPLIN [Concomitant]
     Active Substance: LEUPROLIDE ACETATE
     Route: 058

REACTIONS (3)
  - Aspartate aminotransferase increased [Recovered/Resolved]
  - Alanine aminotransferase increased [Recovered/Resolved]
  - Neutrophil count decreased [None]
